FAERS Safety Report 18709565 (Version 1)
Quarter: 2021Q1

REPORT INFORMATION
  Report Type: Spontaneous
  Country: US (occurrence: US)
  Receive Date: 20210107
  Receipt Date: 20210107
  Transmission Date: 20210419
  Serious: No
  Sender: FDA-Public Use
  Company Number: US-B.I. PHARMACEUTICALS,INC./RIDGEFIELD-2021-BI-074075

PATIENT
  Age: 63 Year
  Sex: Male

DRUGS (2)
  1. GILOTRIF [Suspect]
     Active Substance: AFATINIB
     Dosage: 40MG DAILY
     Dates: start: 202002, end: 202006
  2. GILOTRIF [Suspect]
     Active Substance: AFATINIB
     Indication: LUNG SQUAMOUS CELL CARCINOMA STAGE IV
     Dosage: 30MG DAILY
     Dates: start: 202002

REACTIONS (4)
  - Ear discomfort [Not Recovered/Not Resolved]
  - Urticaria [Recovered/Resolved]
  - Acne pustular [Not Recovered/Not Resolved]
  - Rash [Recovered/Resolved]

NARRATIVE: CASE EVENT DATE: 202006
